FAERS Safety Report 14599063 (Version 1)
Quarter: 2018Q1

REPORT INFORMATION
  Report Type: Spontaneous
  Country: US (occurrence: US)
  Receive Date: 20180302
  Receipt Date: 20180302
  Transmission Date: 20180509
  Serious: Yes (Other)
  Sender: FDA-Public Use
  Company Number: None

PATIENT
  Age: 66 Year
  Sex: Male
  Weight: 135 kg

DRUGS (2)
  1. JARDIANCE [Suspect]
     Active Substance: EMPAGLIFLOZIN
     Route: 048
     Dates: start: 20180123, end: 20180221
  2. JARDIANCE [Suspect]
     Active Substance: EMPAGLIFLOZIN
     Route: 048
     Dates: start: 20180221, end: 20180301

REACTIONS (5)
  - Weight increased [None]
  - Abdominal distension [None]
  - Pain in extremity [None]
  - Muscle spasms [None]
  - Abdominal pain [None]

NARRATIVE: CASE EVENT DATE: 20180301
